FAERS Safety Report 9502181 (Version 3)
Quarter: 2013Q4

REPORT INFORMATION
  Report Type: Report from Study
  Country: KR (occurrence: KR)
  Receive Date: 20130905
  Receipt Date: 20131204
  Transmission Date: 20140711
  Serious: No
  Sender: FDA-Public Use
  Company Number: PHHY2013KR095267

PATIENT
  Age: 56 Year
  Sex: Female

DRUGS (6)
  1. AMN107 [Suspect]
     Indication: CHRONIC MYELOID LEUKAEMIA
     Dosage: 600 MG, UNK
     Route: 048
     Dates: start: 20120913
  2. BARACLUDE [Concomitant]
     Indication: HEPATITIS B
     Dosage: 0.5 MG, UNK
     Route: 048
     Dates: start: 20130514
  3. HALCION [Concomitant]
     Indication: SLEEP DISORDER
     Dosage: 0.125 MG, UNK
     Route: 048
     Dates: start: 20120920, end: 20130816
  4. HALCION [Concomitant]
     Indication: INSOMNIA
  5. TRITTICO [Concomitant]
     Indication: DEPRESSION
     Dosage: 50 MG, UNK
     Route: 048
     Dates: start: 20121005, end: 20130816
  6. TRITTICO [Concomitant]
     Indication: INSOMNIA

REACTIONS (2)
  - Lip ulceration [Recovered/Resolved]
  - Dyspepsia [Recovered/Resolved]
